FAERS Safety Report 10310068 (Version 1)
Quarter: 2014Q3

REPORT INFORMATION
  Report Type: Spontaneous
  Country: US (occurrence: None)
  Receive Date: 20140715
  Receipt Date: 20140715
  Transmission Date: 20150326
  Serious: Yes (Disabling)
  Sender: FDA-Public Use
  Company Number: None

PATIENT
  Age: 47 Year
  Sex: Female
  Weight: 62 kg

DRUGS (2)
  1. BOCOUTURE [Suspect]
     Active Substance: BOTULINUM TOXIN TYPE A
     Indication: EUSTACHIAN TUBE PATULOUS
     Dosage: 4 U, ONCE IN 2 MONHS, INTRAORAL INJECTION
  2. BOCOUTURE [Suspect]
     Active Substance: BOTULINUM TOXIN TYPE A
     Dosage: 4 U, ONCE IN 2 MONHS, INTRAORAL INJECTION

REACTIONS (3)
  - Paraesthesia [None]
  - Peripheral swelling [None]
  - Polyneuropathy [None]

NARRATIVE: CASE EVENT DATE: 20131227
